FAERS Safety Report 6984770-4 (Version None)
Quarter: 2010Q3

REPORT INFORMATION
  Report Type: 
  Country: None (occurrence: None)
  Receive Date: 20100915
  Receipt Date: 20100908
  Transmission Date: 20110219
  Serious: Yes (Other)
  Sender: FDA-Public Use
  Company Number: US-SANOFI-AVENTIS-2010SA041667

PATIENT
  Age: 42 Year
  Sex: Female
  Weight: 84 kg

DRUGS (4)
  1. LANTUS [Suspect]
     Indication: TYPE 2 DIABETES MELLITUS
     Dosage: DOSE:25 UNIT(S)
     Route: 058
     Dates: start: 20030101
  2. OPTICLICK [Suspect]
     Dates: start: 20030101
  3. HUMALOG [Concomitant]
     Dosage: SLIDING SCALE
  4. METFORMIN [Concomitant]

REACTIONS (1)
  - RETINAL DETACHMENT [None]
